FAERS Safety Report 7213500-6 (Version None)
Quarter: 2011Q1

REPORT INFORMATION
  Report Type: 
  Country: None (occurrence: None)
  Receive Date: 20110106
  Receipt Date: 20101223
  Transmission Date: 20110831
  Serious: Yes (Hospitalization, Other)
  Sender: FDA-Public Use
  Company Number: PHHY2010NL87797

PATIENT
  Age: 81 Year
  Sex: Male

DRUGS (3)
  1. METOPROLOL [Suspect]
     Indication: ANGINA PECTORIS
     Dosage: 50 MG, UNK
     Route: 048
     Dates: start: 20041001
  2. AMIODARONE [Concomitant]
  3. METOPROLOL [Suspect]
     Indication: HYPERTENSION
     Dosage: 25MG/DAY
     Route: 048
     Dates: start: 20050101

REACTIONS (10)
  - GRAND MAL CONVULSION [None]
  - MUSCLE SPASMS [None]
  - ANXIETY [None]
  - ABNORMAL DREAMS [None]
  - DEPRESSION [None]
  - NIGHTMARE [None]
  - DYSKINESIA [None]
  - SLEEP DISORDER [None]
  - DRUG INEFFECTIVE [None]
  - ABNORMAL SLEEP-RELATED EVENT [None]
